FAERS Safety Report 11359448 (Version 2)
Quarter: 2015Q3

REPORT INFORMATION
  Report Type: Spontaneous
  Country: GB (occurrence: GB)
  Receive Date: 20150807
  Receipt Date: 20150904
  Transmission Date: 20151125
  Serious: No
  Sender: FDA-Public Use
  Company Number: GB-ABBVIE-15P-167-1384166-00

PATIENT
  Age: 18 Year
  Sex: Female
  Weight: 53 kg

DRUGS (3)
  1. PROSTAP 3 DCS [Suspect]
     Active Substance: LEUPROLIDE ACETATE
     Indication: PRODUCT USED FOR UNKNOWN INDICATION
     Dosage: 11.25 MG, UNK
     Route: 030
     Dates: start: 20150421, end: 20150421
  2. BECONASE AQ [Concomitant]
     Active Substance: BECLOMETHASONE DIPROPIONATE MONOHYDRATE
     Indication: PRODUCT USED FOR UNKNOWN INDICATION
     Dosage: UNK
  3. LORATADINE. [Concomitant]
     Active Substance: LORATADINE
     Indication: PRODUCT USED FOR UNKNOWN INDICATION
     Dosage: UNK

REACTIONS (2)
  - Wrong drug administered [Recovering/Resolving]
  - No adverse event [Unknown]

NARRATIVE: CASE EVENT DATE: 20150421
